FAERS Safety Report 4701085-5 (Version None)
Quarter: 2005Q2

REPORT INFORMATION
  Report Type: 
  Country: None (occurrence: None)
  Receive Date: 20050628
  Receipt Date: 20050427
  Transmission Date: 20051028
  Serious: Yes (Hospitalization)
  Sender: FDA-Public Use
  Company Number: FRWYE627128APR05

PATIENT
  Sex: Female

DRUGS (5)
  1. ENBREL [Suspect]
     Indication: RHEUMATOID ARTHRITIS
     Route: 058
     Dates: start: 20030701, end: 20050417
  2. CORTANCYL [Concomitant]
     Route: 048
  3. DAFALGAN [Concomitant]
     Dosage: UNKNOWN
     Route: 048
  4. LASIX [Concomitant]
     Route: 048
  5. CALCIUM CARBONATE [Concomitant]

REACTIONS (7)
  - AGRANULOCYTOSIS [None]
  - BONE MARROW DEPRESSION [None]
  - ESCHERICHIA URINARY TRACT INFECTION [None]
  - HAEMOGLOBIN DECREASED [None]
  - IATROGENIC INJURY [None]
  - PYREXIA [None]
  - VIRAL INFECTION [None]
